FAERS Safety Report 21285773 (Version 1)
Quarter: 2022Q3

REPORT INFORMATION
  Report Type: Report from Study
  Country: JP (occurrence: JP)
  Receive Date: 20220902
  Receipt Date: 20220902
  Transmission Date: 20221026
  Serious: Yes (Hospitalization)
  Sender: FDA-Public Use
  Company Number: JP-JNJFOC-20200629353

PATIENT
  Age: 47 Year
  Sex: Female
  Weight: 84.9 kg

DRUGS (47)
  1. PLACEBO [Suspect]
     Active Substance: UNSPECIFIED INGREDIENT
     Indication: Dermatomyositis
     Dosage: WEEK 0
     Route: 040
     Dates: start: 20200407
  2. PLACEBO [Suspect]
     Active Substance: UNSPECIFIED INGREDIENT
     Route: 058
     Dates: start: 20200609, end: 20200928
  3. PLACEBO [Suspect]
     Active Substance: UNSPECIFIED INGREDIENT
     Route: 058
     Dates: start: 20201116, end: 20210830
  4. AZILSARTAN KAMEDOXOMIL [Concomitant]
     Active Substance: AZILSARTAN KAMEDOXOMIL
     Indication: Hypertension
     Route: 048
     Dates: start: 20170517, end: 20200304
  5. AMLODIPINE [Concomitant]
     Active Substance: AMLODIPINE BESYLATE
     Indication: Hypertension
     Route: 048
     Dates: start: 20170523, end: 20200303
  6. AMLODIPINE [Concomitant]
     Active Substance: AMLODIPINE BESYLATE
     Route: 048
     Dates: start: 20200304
  7. REBAMIPIDE [Concomitant]
     Active Substance: REBAMIPIDE
     Indication: Gastritis
     Route: 048
     Dates: start: 20181120, end: 20200303
  8. REBAMIPIDE [Concomitant]
     Active Substance: REBAMIPIDE
     Route: 048
     Dates: start: 20200303
  9. FAMOTIDINE [Concomitant]
     Active Substance: FAMOTIDINE
     Indication: Gastritis
     Route: 048
     Dates: start: 20160715, end: 20200303
  10. FAMOTIDINE [Concomitant]
     Active Substance: FAMOTIDINE
     Route: 048
     Dates: start: 20200303
  11. SULFAMETHOXAZOLE\TRIMETHOPRIM [Concomitant]
     Active Substance: SULFAMETHOXAZOLE\TRIMETHOPRIM
     Indication: Pneumocystis jirovecii pneumonia
     Route: 048
     Dates: start: 20170606, end: 20200303
  12. ATORVASTATIN [Concomitant]
     Active Substance: ATORVASTATIN
     Indication: Hyperlipidaemia
     Route: 048
     Dates: start: 20180508, end: 20200303
  13. FOLIC ACID [Concomitant]
     Active Substance: FOLIC ACID
     Indication: Folate deficiency
     Route: 048
     Dates: start: 20190219
  14. PETROLATUM [Concomitant]
     Active Substance: PETROLATUM
     Indication: Dry skin
     Route: 061
     Dates: start: 20200109, end: 20200123
  15. BETAMETHASONE BUTYRATE PROPIONATE [Concomitant]
     Active Substance: BETAMETHASONE BUTYRATE PROPIONATE
     Indication: Intertrigo
     Route: 061
     Dates: start: 20191205, end: 20200308
  16. ZINC OXIDE [Concomitant]
     Active Substance: ZINC OXIDE
     Indication: Intertrigo
     Route: 061
     Dates: start: 20191205, end: 20200308
  17. ZINC OXIDE [Concomitant]
     Active Substance: ZINC OXIDE
     Route: 061
     Dates: start: 20200316, end: 20200511
  18. ZINC OXIDE [Concomitant]
     Active Substance: ZINC OXIDE
     Route: 061
     Dates: start: 20200512
  19. AMLODIPINE [Concomitant]
     Active Substance: AMLODIPINE BESYLATE
     Indication: Gastritis
     Route: 048
     Dates: start: 20200303
  20. SULFAMETHOXAZOLE\TRIMETHOPRIM [Concomitant]
     Active Substance: SULFAMETHOXAZOLE\TRIMETHOPRIM
     Indication: Pneumocystis jirovecii pneumonia
     Route: 048
     Dates: start: 20200304
  21. LIPITOR [Concomitant]
     Active Substance: ATORVASTATIN CALCIUM
     Indication: Hyperlipidaemia
     Route: 048
     Dates: start: 20200304
  22. DENOSUMAB [Concomitant]
     Active Substance: DENOSUMAB
     Indication: Osteoporosis
     Route: 058
     Dates: start: 20200316
  23. RINDERON                           /00008501/ [Concomitant]
     Indication: Intertrigo
     Route: 061
     Dates: start: 20200316, end: 20200511
  24. RINDERON                           /00008501/ [Concomitant]
     Route: 061
     Dates: start: 20200512
  25. AZUNOL                             /00317302/ [Concomitant]
     Indication: Skin erosion
     Route: 061
     Dates: start: 20200323, end: 20200329
  26. PROSTANDIN                         /00501501/ [Concomitant]
     Indication: Skin erosion
     Route: 061
     Dates: start: 20200330, end: 20200406
  27. ETIZOLAM [Concomitant]
     Active Substance: ETIZOLAM
     Indication: Insomnia
     Route: 048
     Dates: start: 20181120, end: 20200325
  28. ETIZOLAM [Concomitant]
     Active Substance: ETIZOLAM
     Route: 048
     Dates: start: 20200407
  29. FELBINAC [Concomitant]
     Active Substance: FELBINAC
     Indication: Compression fracture
     Route: 062
     Dates: start: 20200511
  30. CELECOXIB [Concomitant]
     Active Substance: CELECOXIB
     Indication: Compression fracture
     Route: 048
     Dates: start: 20200525
  31. FLOMOXEF [Concomitant]
     Active Substance: FLOMOXEF
     Route: 048
     Dates: start: 20200525, end: 20200601
  32. DICLOFENAC SODIUM [Concomitant]
     Active Substance: DICLOFENAC SODIUM
     Indication: Compression fracture
     Dosage: LOTION
     Route: 062
     Dates: start: 202005, end: 20200510
  33. FEXOFENADINE HYDROCHLORIDE [Concomitant]
     Active Substance: FEXOFENADINE HYDROCHLORIDE
     Indication: Seasonal allergy
     Route: 048
     Dates: start: 20200610
  34. PREDNISOLONE [Concomitant]
     Active Substance: PREDNISOLONE
     Indication: Dermatomyositis
     Route: 048
     Dates: start: 20190904, end: 20200315
  35. PREDNISOLONE [Concomitant]
     Active Substance: PREDNISOLONE
     Route: 048
     Dates: start: 20200316, end: 20200316
  36. PREDNISOLONE [Concomitant]
     Active Substance: PREDNISOLONE
     Route: 048
     Dates: start: 20200317, end: 20200420
  37. PREDNISOLONE [Concomitant]
     Active Substance: PREDNISOLONE
     Route: 048
     Dates: start: 20200421, end: 20200511
  38. PREDNISOLONE [Concomitant]
     Active Substance: PREDNISOLONE
     Route: 048
     Dates: start: 20200512, end: 20200525
  39. PREDNISOLONE [Concomitant]
     Active Substance: PREDNISOLONE
     Route: 048
     Dates: start: 20200526
  40. METHOTREXATE [Concomitant]
     Active Substance: METHOTREXATE
     Indication: Dermatomyositis
     Route: 048
     Dates: start: 20190219, end: 20191205
  41. METHOTREXATE [Concomitant]
     Active Substance: METHOTREXATE
     Route: 048
     Dates: start: 20191212
  42. TACROLIMUS [Concomitant]
     Active Substance: TACROLIMUS
     Indication: Dermatomyositis
     Route: 048
     Dates: start: 20190903, end: 20191121
  43. TACROLIMUS [Concomitant]
     Active Substance: TACROLIMUS
     Route: 048
     Dates: start: 20191122, end: 20191204
  44. TACROLIMUS [Concomitant]
     Active Substance: TACROLIMUS
     Route: 048
     Dates: start: 20191205, end: 20191225
  45. TACROLIMUS [Concomitant]
     Active Substance: TACROLIMUS
     Route: 048
     Dates: start: 20191226, end: 20200109
  46. TACROLIMUS [Concomitant]
     Active Substance: TACROLIMUS
     Route: 048
     Dates: start: 20200110, end: 20200123
  47. TACROLIMUS [Concomitant]
     Active Substance: TACROLIMUS
     Route: 048
     Dates: start: 20200124, end: 20200205

REACTIONS (1)
  - Herpes zoster [Recovered/Resolved]

NARRATIVE: CASE EVENT DATE: 20200613
